FAERS Safety Report 8443581-3 (Version None)
Quarter: 2012Q2

REPORT INFORMATION
  Report Type: 
  Country: None (occurrence: None)
  Receive Date: 20120618
  Receipt Date: 20120612
  Transmission Date: 20120825
  Serious: No
  Sender: FDA-Public Use
  Company Number: US-PFIZER INC-2012141863

PATIENT
  Sex: Female

DRUGS (3)
  1. NEURONTIN [Suspect]
     Indication: NERVE INJURY
     Dosage: UNK
  2. LYRICA [Suspect]
     Indication: NEURALGIA
     Dosage: UNK
  3. GABAPENTIN [Suspect]
     Indication: NERVE INJURY
     Dosage: 300 MG, 3X/DAY
     Route: 048
     Dates: start: 20120401

REACTIONS (5)
  - ASTHENIA [None]
  - NAUSEA [None]
  - NEURALGIA [None]
  - VOMITING [None]
  - MALAISE [None]
